FAERS Safety Report 23165694 (Version 3)
Quarter: 2023Q4

REPORT INFORMATION
  Report Type: Spontaneous
  Country: CA (occurrence: CA)
  Receive Date: 20231109
  Receipt Date: 20231229
  Transmission Date: 20240109
  Serious: Yes (Other)
  Sender: FDA-Public Use
  Company Number: CA-PFIZER INC-202200938303

PATIENT
  Age: 51 Year
  Sex: Male

DRUGS (2)
  1. ABRILADA [Suspect]
     Active Substance: ADALIMUMAB-AFZB
     Indication: Ankylosing spondylitis
     Dosage: 40 MG EVERY 2 WEEKS
     Route: 058
     Dates: start: 20221103
  2. METHOTREXATE [Concomitant]
     Active Substance: METHOTREXATE
     Dosage: 15 MG FREQUENCY NOT AVAILABLE
     Route: 048
     Dates: start: 202203

REACTIONS (2)
  - Lung neoplasm malignant [Not Recovered/Not Resolved]
  - Pneumonia [Unknown]
